FAERS Safety Report 6376164-X (Version None)
Quarter: 2009Q3

REPORT INFORMATION
  Report Type: 
  Country: None (occurrence: None)
  Receive Date: 20090924
  Receipt Date: 20090914
  Transmission Date: 20100115
  Serious: Yes (Death, Hospitalization, Other)
  Sender: FDA-Public Use
  Company Number: US-TYCO HEALTHCARE/MALLINCKRODT-T200901119

PATIENT
  Sex: Female

DRUGS (15)
  1. OPTIMARK [Suspect]
     Indication: NUCLEAR MAGNETIC RESONANCE IMAGING BRAIN
     Dosage: UNK
     Route: 042
     Dates: start: 20060228, end: 20060228
  2. OPTIMARK [Suspect]
     Indication: NUCLEAR MAGNETIC RESONANCE IMAGING
     Dosage: UNK
     Route: 042
     Dates: start: 20060315, end: 20060315
  3. OMNISCAN [Suspect]
     Indication: NUCLEAR MAGNETIC RESONANCE IMAGING
     Dosage: UNK
     Dates: start: 20040212, end: 20040412
  4. OMNISCAN [Suspect]
     Indication: NUCLEAR MAGNETIC RESONANCE IMAGING BRAIN
     Dosage: UNK
     Dates: start: 20040218, end: 20040218
  5. OMNISCAN [Suspect]
     Dosage: UNK
     Dates: start: 20040405, end: 20040405
  6. OMNISCAN [Suspect]
     Dosage: UNK
     Dates: start: 20040505, end: 20040505
  7. OMNISCAN [Suspect]
     Dosage: UNK
     Dates: start: 20040629, end: 20040629
  8. PREDNISONE TAB [Concomitant]
     Dosage: 7.5 MG, QD
  9. SYNTHROID [Concomitant]
     Dosage: 25 UG, QD
  10. PRILOSEC [Concomitant]
     Dosage: 40 MG, QD
  11. NEPHROCAPS [Concomitant]
     Dosage: 1 DAILY
  12. DILANTIN [Concomitant]
     Dosage: 600 MG, BID
  13. COUMADIN [Concomitant]
     Dosage: 3 MG, H.S.
  14. CARDIZEM [Concomitant]
     Dosage: 120 MG, QD
  15. SENSIPAR [Concomitant]

REACTIONS (14)
  - ABDOMINAL PAIN [None]
  - ASTHENIA [None]
  - CELLULITIS [None]
  - CLOSTRIDIUM DIFFICILE COLITIS [None]
  - DYSPNOEA [None]
  - KLEBSIELLA SEPSIS [None]
  - NEPHROGENIC SYSTEMIC FIBROSIS [None]
  - OFF LABEL USE [None]
  - PNEUMONIA [None]
  - PULMONARY ALVEOLAR HAEMORRHAGE [None]
  - PYREXIA [None]
  - RESPIRATORY FAILURE [None]
  - SYSTEMIC LUPUS ERYTHEMATOSUS [None]
  - UPPER RESPIRATORY TRACT INFECTION [None]
